FAERS Safety Report 23217931 (Version 1)
Quarter: 2023Q4

REPORT INFORMATION
  Report Type: Spontaneous
  Country: None (occurrence: AU)
  Receive Date: 20231122
  Receipt Date: 20231122
  Transmission Date: 20240109
  Serious: Yes (Other)
  Sender: FDA-Public Use
  Company Number: AU-Harrow Eye-2148590

PATIENT
  Age: 59 Year
  Sex: Male

DRUGS (5)
  1. NEVANAC [Suspect]
     Active Substance: NEPAFENAC
     Indication: Exudative retinopathy
     Route: 061
  2. MAXITROL [Suspect]
     Active Substance: DEXAMETHASONE\NEOMYCIN SULFATE\POLYMYXIN B SULFATE
     Route: 061
  3. TAFLUPROST [Suspect]
     Active Substance: TAFLUPROST
     Route: 061
  4. SIMBRINZA [Suspect]
     Active Substance: BRIMONIDINE TARTRATE\BRINZOLAMIDE
     Route: 061
  5. ACETAZOLAMIDE [Suspect]
     Active Substance: ACETAZOLAMIDE
     Route: 048

REACTIONS (5)
  - Ulcerative keratitis [Recovered/Resolved]
  - Corneal defect [Recovered/Resolved]
  - Hypoaesthesia eye [Recovered/Resolved]
  - Neurotrophic keratopathy [Recovered/Resolved]
  - Toxicity to various agents [Unknown]
